FAERS Safety Report 19897892 (Version 1)
Quarter: 2021Q3

REPORT INFORMATION
  Report Type: Spontaneous
  Country: US (occurrence: US)
  Receive Date: 20210929
  Receipt Date: 20210929
  Transmission Date: 20211014
  Serious: Yes (Hospitalization)
  Sender: FDA-Public Use
  Company Number: US-AMNEAL PHARMACEUTICALS-2021-AMRX-02135

PATIENT
  Age: 64 Year
  Sex: Male

DRUGS (1)
  1. RYTARY [Suspect]
     Active Substance: CARBIDOPA\LEVODOPA
     Indication: PRODUCT USED FOR UNKNOWN INDICATION
     Dosage: 2 CAPSULES, 4X/DAY
     Route: 048
     Dates: start: 2016

REACTIONS (3)
  - Drooling [Recovering/Resolving]
  - Nightmare [Recovering/Resolving]
  - Adverse event [Unknown]

NARRATIVE: CASE EVENT DATE: 20210529
